FAERS Safety Report 4761536-7 (Version None)
Quarter: 2005Q3

REPORT INFORMATION
  Report Type: 
  Country: None (occurrence: None)
  Receive Date: 20050906
  Receipt Date: 20041104
  Transmission Date: 20060218
  Serious: Yes (Hospitalization)
  Sender: FDA-Public Use
  Company Number: 2004UW22805

PATIENT
  Age: 22759 Day
  Sex: Female
  Weight: 72 kg

DRUGS (14)
  1. ZD1839 [Suspect]
     Indication: NON-SMALL CELL LUNG CANCER METASTATIC
     Route: 048
     Dates: start: 20031215, end: 20040823
  2. ZD1839 [Suspect]
     Route: 048
     Dates: start: 20040916, end: 20041015
  3. ZD1839 [Suspect]
     Route: 048
     Dates: start: 20041018, end: 20041101
  4. ZD1839 [Suspect]
     Route: 048
     Dates: start: 20041104
  5. TYLENOL [Concomitant]
     Indication: CANCER PAIN
     Route: 048
     Dates: start: 20030714
  6. PROTONIX [Concomitant]
     Indication: GASTROOESOPHAGEAL REFLUX DISEASE
     Route: 048
     Dates: start: 20040103
  7. PREMARIN [Concomitant]
     Indication: INSOMNIA
     Route: 048
     Dates: start: 20040128
  8. PREMARIN [Concomitant]
     Indication: IRRITABILITY
     Route: 048
     Dates: start: 20040128
  9. CLEOCIN T-GEL [Concomitant]
     Indication: RASH
     Route: 061
     Dates: start: 20040128
  10. BACTRIM [Concomitant]
     Indication: URINARY TRACT INFECTION
     Route: 048
     Dates: start: 20041028, end: 20041030
  11. BACTRIM [Concomitant]
     Route: 048
     Dates: start: 20041101, end: 20041101
  12. IMODIUM [Concomitant]
     Indication: DIARRHOEA
     Route: 048
     Dates: start: 20040103
  13. MULTI-VITAMIN [Concomitant]
     Indication: MEDICAL DIET
     Route: 048
     Dates: start: 20030519
  14. CIPROFLOXACIN [Concomitant]
     Indication: DYSURIA
     Route: 048
     Dates: start: 20041103

REACTIONS (8)
  - DEHYDRATION [None]
  - LIVER FUNCTION TEST ABNORMAL [None]
  - NAUSEA [None]
  - RENAL FAILURE ACUTE [None]
  - TRANSAMINASES INCREASED [None]
  - UPPER RESPIRATORY TRACT INFECTION [None]
  - URINARY TRACT INFECTION [None]
  - VOMITING [None]
